FAERS Safety Report 4618062-5 (Version None)
Quarter: 2005Q2

REPORT INFORMATION
  Report Type: 
  Country: None (occurrence: None)
  Receive Date: 20050316
  Receipt Date: 20050202
  Transmission Date: 20051028
  Serious: Yes (Other)
  Sender: FDA-Public Use
  Company Number: S05-USA-00617-01

PATIENT
  Age: 14 Year
  Sex: Male

DRUGS (5)
  1. LEXAPRO [Suspect]
     Indication: ASPERGER'S DISORDER
     Dosage: 10 MG QD PO
     Route: 048
     Dates: start: 20030801
  2. LEXAPRO [Suspect]
     Indication: ASPERGER'S DISORDER
     Dosage: 5 MG QD PO
     Route: 048
     Dates: start: 20030101, end: 20030801
  3. SAIZEN [Suspect]
     Indication: BLOOD GROWTH HORMONE
     Dates: start: 20031213, end: 20040312
  4. METADATE CD [Concomitant]
  5. SYNTHROID [Concomitant]

REACTIONS (1)
  - AGGRESSION [None]
